FAERS Safety Report 18540573 (Version 2)
Quarter: 2020Q4

REPORT INFORMATION
  Report Type: Spontaneous
  Country: CN (occurrence: CN)
  Receive Date: 20201124
  Receipt Date: 20201229
  Transmission Date: 20210114
  Serious: No
  Sender: FDA-Public Use
  Company Number: CN-GLAXOSMITHKLINE-CN2020228499

PATIENT
  Sex: Male

DRUGS (1)
  1. FLIXONASE [Suspect]
     Active Substance: FLUTICASONE PROPIONATE
     Indication: PRODUCT USED FOR UNKNOWN INDICATION
     Dosage: UNK

REACTIONS (1)
  - Overdose [Unknown]
